FAERS Safety Report 17156066 (Version 4)
Quarter: 2020Q2

REPORT INFORMATION
  Report Type: Report from Study
  Country: None (occurrence: US)
  Receive Date: 20191216
  Receipt Date: 20200501
  Transmission Date: 20200713
  Serious: Yes (Other)
  Sender: FDA-Public Use
  Company Number: US-ABBVIE-19K-163-3192976-00

PATIENT
  Age: 54 Year
  Sex: Female

DRUGS (2)
  1. HUMIRA [Suspect]
     Active Substance: ADALIMUMAB
     Indication: RHEUMATOID ARTHRITIS
     Route: 058
     Dates: start: 20191022
  2. PREDNISONE. [Concomitant]
     Active Substance: PREDNISONE
     Indication: PRODUCT USED FOR UNKNOWN INDICATION

REACTIONS (16)
  - Injection site pain [Unknown]
  - Ear pain [Recovering/Resolving]
  - Visual impairment [Unknown]
  - Pain in extremity [Unknown]
  - Deafness unilateral [Recovering/Resolving]
  - Chills [Unknown]
  - Peripheral swelling [Unknown]
  - Hyperhidrosis [Unknown]
  - Arthralgia [Recovered/Resolved]
  - Dizziness [Recovered/Resolved]
  - Hypoaesthesia oral [Unknown]
  - Arthralgia [Unknown]
  - Impaired self-care [Unknown]
  - Mobility decreased [Unknown]
  - Neck pain [Unknown]
  - Joint swelling [Unknown]

NARRATIVE: CASE EVENT DATE: 2019
